FAERS Safety Report 10162115 (Version 1)
Quarter: 2014Q2

REPORT INFORMATION
  Report Type: Spontaneous
  Country: US (occurrence: None)
  Receive Date: 20140507
  Receipt Date: 20140507
  Transmission Date: 20141212
  Serious: Yes (Congenital Anomaly)
  Sender: FDA-Public Use
  Company Number: 2014AP002832

PATIENT
  Sex: Male

DRUGS (1)
  1. PAROXETINE HYDROCHLORIDE (PAROXETINE) UNKNOWN [Suspect]

REACTIONS (8)
  - Coarctation of the aorta [None]
  - Bicuspid aortic valve [None]
  - Injury [None]
  - Quality of life decreased [None]
  - Foetal exposure during pregnancy [None]
  - Cardiac disorder [None]
  - Pain [None]
  - Anxiety [None]
